FAERS Safety Report 8116614-1 (Version None)
Quarter: 2012Q1

REPORT INFORMATION
  Report Type: 
  Country: None (occurrence: None)
  Receive Date: 20120131
  Receipt Date: 20120124
  Transmission Date: 20120608
  Serious: Yes (Death, Other)
  Sender: FDA-Public Use
  Company Number: 2007JP005185

PATIENT
  Age: 4 Year
  Sex: Female
  Weight: 21.5 kg

DRUGS (8)
  1. MEDROL [Suspect]
     Indication: DILATATION INTRAHEPATIC DUCT CONGENITAL
     Dosage: 7.5 MG, UID/QD, IV NOS
     Route: 042
     Dates: start: 20070518, end: 20070628
  2. MEDROL [Suspect]
     Indication: CONGENITAL CYSTIC KIDNEY DISEASE
     Dosage: 7.5 MG, UID/QD, IV NOS
     Route: 042
     Dates: start: 20070518, end: 20070628
  3. RITUXAN [Concomitant]
  4. CELLCEPT [Suspect]
     Indication: DILATATION INTRAHEPATIC DUCT CONGENITAL
     Dosage: 170 MG, BID, ORAL
     Route: 048
     Dates: start: 20070516, end: 20070528
  5. CELLCEPT [Suspect]
     Indication: CONGENITAL CYSTIC KIDNEY DISEASE
     Dosage: 170 MG, BID, ORAL
     Route: 048
     Dates: start: 20070516, end: 20070528
  6. BASILIXIMAB [Concomitant]
  7. PROGRAF [Suspect]
     Indication: CONGENITAL CYSTIC KIDNEY DISEASE
     Dosage: 0.015 MG, CONTINUOUS, IV DRIP
     Route: 041
     Dates: start: 20070519, end: 20070628
  8. PROGRAF [Suspect]
     Indication: DILATATION INTRAHEPATIC DUCT CONGENITAL
     Dosage: 0.015 MG, CONTINUOUS, IV DRIP
     Route: 041
     Dates: start: 20070519, end: 20070628

REACTIONS (6)
  - LIVER TRANSPLANT REJECTION [None]
  - MULTI-ORGAN FAILURE [None]
  - DRUG INEFFECTIVE [None]
  - POST PROCEDURAL SEPSIS [None]
  - KIDNEY TRANSPLANT REJECTION [None]
  - PSEUDOMONAL SEPSIS [None]
